FAERS Safety Report 6876074-5 (Version None)
Quarter: 2010Q2

REPORT INFORMATION
  Report Type: 
  Country: None (occurrence: None)
  Receive Date: 20100616
  Receipt Date: 20100405
  Transmission Date: 20101027
  Serious: No
  Sender: FDA-Public Use
  Company Number: DSA_42896_2010

PATIENT
  Sex: Female

DRUGS (4)
  1. XENAZINE [Suspect]
     Indication: DYSTONIA
     Dosage: (12. 5 MG QD ORAL)
     Route: 048
     Dates: start: 20100328
  2. LEVOTHYROXINE SODIUM [Concomitant]
  3. LEXAPRO [Concomitant]
  4. ZOLOFT [Concomitant]

REACTIONS (2)
  - FATIGUE [None]
  - PRURITUS [None]
